FAERS Safety Report 12579999 (Version 1)
Quarter: 2016Q3

REPORT INFORMATION
  Report Type: Spontaneous
  Country: IT (occurrence: IT)
  Receive Date: 20160721
  Receipt Date: 20160721
  Transmission Date: 20161109
  Serious: Yes (Hospitalization, Other)
  Sender: FDA-Public Use
  Company Number: IT-BRISTOL-MYERS SQUIBB COMPANY-BMS-2016-058568

PATIENT
  Age: 87 Year
  Sex: Female

DRUGS (1)
  1. ELIQUIS [Suspect]
     Active Substance: APIXABAN
     Indication: CEREBROVASCULAR ACCIDENT PROPHYLAXIS
     Dosage: 2 U, DAILY
     Route: 048
     Dates: start: 20160119, end: 20160129

REACTIONS (4)
  - Haematoma [Recovering/Resolving]
  - Pleural effusion [Recovering/Resolving]
  - Conjunctival haemorrhage [Recovering/Resolving]
  - Ear haemorrhage [Recovering/Resolving]

NARRATIVE: CASE EVENT DATE: 20160129
